FAERS Safety Report 5660754-3 (Version None)
Quarter: 2008Q1

REPORT INFORMATION
  Report Type: 
  Country: None (occurrence: None)
  Receive Date: 20080311
  Receipt Date: 20080229
  Transmission Date: 20080703
  Serious: Yes (Hospitalization, Other)
  Sender: FDA-Public Use
  Company Number: US-ELI_LILLY_AND_COMPANY-US200802007042

PATIENT
  Sex: Female

DRUGS (25)
  1. HUMALOG MIX 75/25 [Suspect]
     Dosage: 90 UNK, EACH MORNING
  2. HUMALOG MIX 75/25 [Suspect]
     Dosage: 54 UNK, EACH EVENING
  3. HUMALOG MIX 75/25 [Suspect]
  4. COZAAR [Concomitant]
     Dosage: 50 MG, EACH MORNING
  5. ISOSORBIDE DINITRATE [Concomitant]
     Dosage: 60 MG, EACH EVENING
  6. GLIMEPIRIDE [Concomitant]
     Dosage: 8 MG, EACH EVENING
  7. LEVOTHYROXINE SODIUM [Concomitant]
     Dosage: 150 MG, EACH MORNING
  8. LEVOTHYROXINE SODIUM [Concomitant]
     Dosage: 150 MG, 2 ON SUNDAY MORNING
  9. LOVASTATIN [Concomitant]
     Dosage: 40 MG, EACH EVENING
  10. WARFARIN SODIUM [Concomitant]
     Dosage: 2.5 MG, EACH EVENING
  11. FUROSEMIDE [Concomitant]
  12. OMEPRAZOLE [Concomitant]
     Dosage: 20 MG, EACH MORNING
  13. ALLOPURINOL [Concomitant]
     Dosage: 300 MG, EACH MORNING
  14. LUMIGAN [Concomitant]
     Dosage: 1 UNK, UNK
     Route: 047
  15. CALCITRIOL [Concomitant]
     Dosage: 0.5 MG, 2/D
  16. AMBIEN [Concomitant]
     Dosage: UNK, AS NEEDED
  17. HYDROCODONE BITARTRATE [Concomitant]
  18. NORVASK [Concomitant]
  19. METOPROLOL TARTRATE [Concomitant]
  20. MUCOMYST [Concomitant]
  21. DIOVAN [Concomitant]
  22. CORTICOSTEROIDS [Concomitant]
  23. COLCHICINE [Concomitant]
  24. CEPHALEXIN [Concomitant]
  25. ACCUPRIL [Concomitant]

REACTIONS (38)
  - ANGIOPATHY [None]
  - ARTERIAL OCCLUSIVE DISEASE [None]
  - ARTHRALGIA [None]
  - ARTHROPATHY [None]
  - BLISTER [None]
  - BLOOD BLISTER [None]
  - BLOOD GLUCOSE DECREASED [None]
  - CATARACT [None]
  - CONTUSION [None]
  - DEAFNESS [None]
  - DIVERTICULITIS [None]
  - DYSPNOEA [None]
  - ECHOCARDIOGRAM ABNORMAL [None]
  - EXCORIATION [None]
  - EYE LASER SURGERY [None]
  - FALL [None]
  - FRACTURE [None]
  - GAIT DISTURBANCE [None]
  - GOUT [None]
  - HEARING IMPAIRED [None]
  - INCISION SITE COMPLICATION [None]
  - INCISION SITE INFECTION [None]
  - JOINT INJURY [None]
  - KNEE ARTHROPLASTY [None]
  - LOCAL SWELLING [None]
  - NERVE INJURY [None]
  - OEDEMA PERIPHERAL [None]
  - PAIN IN EXTREMITY [None]
  - PERICARDIAL EFFUSION [None]
  - PULMONARY EMBOLISM [None]
  - PULMONARY OEDEMA [None]
  - RASH [None]
  - RENAL DISORDER [None]
  - ROTATOR CUFF SYNDROME [None]
  - SKIN GRAFT [None]
  - SKIN GRAFT FAILURE [None]
  - THROMBOSIS [None]
  - WOUND COMPLICATION [None]
